FAERS Safety Report 5667600-2 (Version None)
Quarter: 2008Q1

REPORT INFORMATION
  Report Type: 
  Country: None (occurrence: None)
  Receive Date: 20080315
  Receipt Date: 20080125
  Transmission Date: 20080703
  Serious: Yes (Hospitalization)
  Sender: FDA-Public Use
  Company Number: US-ABBOTT-08P-163-0435525-00

PATIENT
  Sex: Male
  Weight: 70.37 kg

DRUGS (1)
  1. HUMIRA [Suspect]
     Indication: CROHN'S DISEASE
     Route: 058
     Dates: start: 20071201

REACTIONS (5)
  - ABDOMINAL DISCOMFORT [None]
  - EYELID OEDEMA [None]
  - HERPES ZOSTER [None]
  - INFLUENZA [None]
  - NASOPHARYNGITIS [None]
